FAERS Safety Report 7778959-4 (Version None)
Quarter: 2011Q3

REPORT INFORMATION
  Report Type: 
  Country: None (occurrence: None)
  Receive Date: 20110926
  Receipt Date: 20110914
  Transmission Date: 20111222
  Serious: No
  Sender: FDA-Public Use
  Company Number: US-B.I. PHARMACEUTICALS,INC./RIDGEFIELD-2011-BP-22242BP

PATIENT
  Sex: Female

DRUGS (9)
  1. SIMVASTATIN [Concomitant]
     Dosage: 10 MG
     Route: 048
  2. COMBIVENT [Suspect]
     Indication: CHRONIC OBSTRUCTIVE PULMONARY DISEASE
     Dosage: 8 PUF
     Route: 055
  3. KLONOPIN [Concomitant]
     Indication: ANXIETY
     Dosage: 4 MG
     Route: 048
  4. KEFLEX [Concomitant]
     Route: 048
  5. VICODIN [Concomitant]
     Route: 048
  6. LISINOPRIL [Concomitant]
     Indication: HYPERTENSION
     Dosage: 10 MG
     Route: 048
  7. TOPAMAX [Concomitant]
     Indication: ANXIETY
     Dosage: 400 MG
     Route: 048
  8. ROZEREM [Concomitant]
     Indication: SLEEP DISORDER
     Dosage: 8 MG
     Route: 048
  9. BACTRIM DS [Concomitant]
     Route: 048

REACTIONS (1)
  - FLUSHING [None]
